FAERS Safety Report 18453979 (Version 1)
Quarter: 2020Q4

REPORT INFORMATION
  Report Type: Spontaneous
  Country: US (occurrence: US)
  Receive Date: 20201102
  Receipt Date: 20201102
  Transmission Date: 20210114
  Serious: No
  Sender: FDA-Public Use
  Company Number: US-BAUSCH-BL-2020-029952

PATIENT
  Age: 68 Year
  Sex: Male

DRUGS (2)
  1. LOTEMAX SM [Suspect]
     Active Substance: LOTEPREDNOL ETABONATE
     Indication: DRY EYE
     Dosage: TOTAL 56 DROPS
     Route: 047
  2. LOTEMAX SM [Suspect]
     Active Substance: LOTEPREDNOL ETABONATE
     Indication: PRODUCT USE IN UNAPPROVED INDICATION
     Dosage: TOTAL 24 DROPS
     Route: 047

REACTIONS (4)
  - Product use in unapproved indication [Unknown]
  - Product delivery mechanism issue [Unknown]
  - Product prescribing error [Unknown]
  - Extra dose administered [Unknown]
